FAERS Safety Report 4381454-6 (Version None)
Quarter: 2004Q2

REPORT INFORMATION
  Report Type: 
  Country: None (occurrence: None)
  Receive Date: 20040616
  Receipt Date: 20040605
  Transmission Date: 20050107
  Serious: Yes (Other)
  Sender: FDA-Public Use
  Company Number: 2004037847

PATIENT
  Age: 25 Year
  Sex: Female

DRUGS (2)
  1. DILANTIN [Suspect]
     Indication: ILL-DEFINED DISORDER
     Dosage: 200 MG (50 MG, 4 IN 1 D) GASTROSTOMY TUBE
  2. PHENOBARBITAL TAB [Concomitant]

REACTIONS (1)
  - GASTROSTOMY TUBE INSERTION [None]
